FAERS Safety Report 13058858 (Version 8)
Quarter: 2017Q4

REPORT INFORMATION
  Report Type: Spontaneous
  Country: AU (occurrence: AU)
  Receive Date: 20161223
  Receipt Date: 20171113
  Transmission Date: 20180320
  Serious: Yes (Hospitalization)
  Sender: FDA-Public Use
  Company Number: ALCN2016AU009011

PATIENT
  Age: 63 Year
  Sex: Male

DRUGS (6)
  1. DEXAMETHASONE. [Suspect]
     Active Substance: DEXAMETHASONE
     Indication: PRODUCT USED FOR UNKNOWN INDICATION
     Dosage: 1 DF, QID
     Route: 047
  2. RANIBIZUMAB. [Concomitant]
     Active Substance: RANIBIZUMAB
     Indication: CHOROIDAL NEOVASCULARISATION
     Route: 031
  3. DEXAMETHASONE. [Suspect]
     Active Substance: DEXAMETHASONE
     Indication: INTRAOPERATIVE CARE
     Dosage: 1 DF, ONCE/SINGLE
     Route: 057
  4. CHLORAMPENICOL [Suspect]
     Active Substance: CHLORAMPHENICOL
     Indication: INTRAOCULAR PRESSURE INCREASED
     Dosage: 1 DF, QID
     Route: 047
  5. CEFAZOLIN [Suspect]
     Active Substance: CEFAZOLIN
     Indication: INTRAOPERATIVE CARE
     Dosage: 1 DF, ONCE/SINGLE
     Route: 031
  6. DICLOFENAC [Suspect]
     Active Substance: DICLOFENAC
     Indication: PRODUCT USED FOR UNKNOWN INDICATION
     Dosage: 1 DF, QID
     Route: 047

REACTIONS (2)
  - Viral uveitis [Unknown]
  - Intraocular pressure increased [Recovered/Resolved]

NARRATIVE: CASE EVENT DATE: 2015
